FAERS Safety Report 12841031 (Version 2)
Quarter: 2017Q1

REPORT INFORMATION
  Report Type: Report from Study
  Country: ID (occurrence: ID)
  Receive Date: 20161012
  Receipt Date: 20170124
  Transmission Date: 20170428
  Serious: Yes (Death, Hospitalization)
  Sender: FDA-Public Use
  Company Number: ID-BAYER-2016-192657

PATIENT
  Age: 59 Year
  Sex: Male

DRUGS (1)
  1. NEXAVAR [Suspect]
     Active Substance: SORAFENIB
     Indication: HEPATOCELLULAR CARCINOMA
     Dosage: DAILY DOSE 400 MG (2 X 200MG)
     Route: 048
     Dates: start: 20160915, end: 20161227

REACTIONS (7)
  - Loss of consciousness [Recovered/Resolved]
  - Asthenia [None]
  - Vomiting [Not Recovered/Not Resolved]
  - Condition aggravated [None]
  - Hepatocellular carcinoma [Fatal]
  - Blood pressure increased [Not Recovered/Not Resolved]
  - Loss of consciousness [Fatal]

NARRATIVE: CASE EVENT DATE: 20160930
